FAERS Safety Report 10029559 (Version 1)
Quarter: 2014Q1

REPORT INFORMATION
  Report Type: Spontaneous
  Country: US (occurrence: None)
  Receive Date: 20140320
  Receipt Date: 20140320
  Transmission Date: 20141002
  Serious: Yes (Other)
  Sender: FDA-Public Use
  Company Number: None

PATIENT
  Age: 47 Year
  Sex: Female
  Weight: 76.2 kg

DRUGS (1)
  1. NASACORT [Suspect]
     Indication: NASAL DISORDER
     Dosage: 2 SPRAYS ONCE DAILY NOSE
     Route: 045
     Dates: start: 20140309, end: 20140317

REACTIONS (4)
  - Headache [None]
  - Myalgia [None]
  - Arthralgia [None]
  - Blood blister [None]
